FAERS Safety Report 10223748 (Version 1)
Quarter: 2014Q2

REPORT INFORMATION
  Report Type: Report from Study
  Country: DE (occurrence: DE)
  Receive Date: 20140609
  Receipt Date: 20140609
  Transmission Date: 20141212
  Serious: Yes (Other)
  Sender: FDA-Public Use
  Company Number: DE-US-EMD SERONO, INC.-7296460

PATIENT
  Age: 48 Year
  Sex: Female

DRUGS (10)
  1. REBIF [Suspect]
     Indication: MULTIPLE SCLEROSIS
     Route: 058
     Dates: start: 2002
  2. NEPRESOL                           /00017902/ [Concomitant]
     Indication: PRODUCT USED FOR UNKNOWN INDICATION
  3. RAMIPRIL [Concomitant]
     Indication: PRODUCT USED FOR UNKNOWN INDICATION
  4. NITRENDIPINE [Concomitant]
     Indication: PRODUCT USED FOR UNKNOWN INDICATION
  5. GEMFIBROZIL [Concomitant]
     Indication: PRODUCT USED FOR UNKNOWN INDICATION
  6. UNACID                             /00903602/ [Concomitant]
     Indication: PRODUCT USED FOR UNKNOWN INDICATION
  7. ROHYPNOL [Concomitant]
     Indication: PRODUCT USED FOR UNKNOWN INDICATION
  8. BACLOFEN [Concomitant]
     Indication: PRODUCT USED FOR UNKNOWN INDICATION
  9. UBRETID [Concomitant]
     Indication: PRODUCT USED FOR UNKNOWN INDICATION
  10. DESMOGALEN [Concomitant]
     Indication: PRODUCT USED FOR UNKNOWN INDICATION

REACTIONS (3)
  - Nephritis [Recovered/Resolved]
  - Sepsis [Recovered/Resolved]
  - Hypertension [Recovered/Resolved]
